FAERS Safety Report 22370805 (Version 1)
Quarter: 2023Q2

REPORT INFORMATION
  Report Type: Spontaneous
  Country: US (occurrence: US)
  Receive Date: 20230526
  Receipt Date: 20230526
  Transmission Date: 20230721
  Serious: Yes (Hospitalization, Other)
  Sender: FDA-Public Use
  Company Number: US-SUN PHARMACEUTICAL INDUSTRIES LTD-2023R1-388979

PATIENT
  Sex: Male

DRUGS (2)
  1. BUPRENORPHINE\NALOXONE [Suspect]
     Active Substance: BUPRENORPHINE\NALOXONE
     Indication: Pain
     Dosage: UNK
     Route: 065
     Dates: start: 202211
  2. XANAX [Concomitant]
     Active Substance: ALPRAZOLAM
     Indication: Alcohol abuse
     Dosage: UNK
     Route: 065

REACTIONS (6)
  - Seizure [Unknown]
  - Haemorrhage [Unknown]
  - Rash [Unknown]
  - Pruritus [Unknown]
  - Erythema [Unknown]
  - Thermal burn [Unknown]
